FAERS Safety Report 4990010-8 (Version None)
Quarter: 2006Q2

REPORT INFORMATION
  Report Type: 
  Country: None (occurrence: None)
  Receive Date: 20060427
  Receipt Date: 20060419
  Transmission Date: 20061013
  Serious: Yes (Other)
  Sender: FDA-Public Use
  Company Number: 2006051001

PATIENT
  Sex: Female

DRUGS (1)
  1. BONAMINE [Suspect]
     Indication: FOOD POISONING
     Dosage: 2 TABLETS ONCE, ORAL
     Route: 048
     Dates: start: 20060414, end: 20060414

REACTIONS (2)
  - DRUG INEFFECTIVE [None]
  - VOMITING [None]
